FAERS Safety Report 16289350 (Version 6)
Quarter: 2023Q2

REPORT INFORMATION
  Report Type: Report from Study
  Country: US (occurrence: None)
  Receive Date: 20190509
  Receipt Date: 20230526
  Transmission Date: 20230722
  Serious: Yes (Hospitalization)
  Sender: FDA-Public Use
  Company Number: US-ROCHE-2311077

PATIENT
  Age: 68 Year
  Sex: Male
  Weight: 115 kg

DRUGS (20)
  1. COBIMETINIB [Suspect]
     Active Substance: COBIMETINIB
     Indication: Haemophagocytic lymphohistiocytosis
     Route: 048
     Dates: start: 20190109, end: 20190423
  2. COBIMETINIB [Suspect]
     Active Substance: COBIMETINIB
     Route: 048
     Dates: start: 20190109, end: 20190123
  3. COBIMETINIB [Suspect]
     Active Substance: COBIMETINIB
     Route: 048
     Dates: start: 20190516
  4. COBIMETINIB [Suspect]
     Active Substance: COBIMETINIB
     Route: 048
     Dates: start: 20190109, end: 20190626
  5. COBIMETINIB [Suspect]
     Active Substance: COBIMETINIB
     Route: 048
     Dates: start: 20190109, end: 20190605
  6. COBIMETINIB [Suspect]
     Active Substance: COBIMETINIB
     Route: 048
     Dates: start: 20190109, end: 20190730
  7. COBIMETINIB [Suspect]
     Active Substance: COBIMETINIB
     Dosage: 2 TAB QDX21 DAYS ON/7DAYS OFF
     Route: 048
  8. COBIMETINIB [Suspect]
     Active Substance: COBIMETINIB
     Route: 048
     Dates: start: 20190109, end: 20190822
  9. COBIMETINIB [Suspect]
     Active Substance: COBIMETINIB
     Route: 048
     Dates: start: 20190109, end: 20190912
  10. CLOBETASOL [Concomitant]
     Active Substance: CLOBETASOL
     Dosage: 0.05% TOPICAL SOLUTION APPLY TOPICALLY TO AFFECTED AREA ONCE A DAY
  11. FENOFIBRATE [Concomitant]
     Active Substance: FENOFIBRATE
     Dosage: 160 MG ORAL TABLET 1 TAB(S) ORALLY ONCE A DAY
     Route: 048
  12. HYDROCORTISONE [Concomitant]
     Active Substance: HYDROCORTISONE
     Indication: Rash
     Dosage: 2.5% TOPICAL CREAM APPLY TOPICALLY TO AFFECTED AREA 2 TIMES A DAY
  13. LANTUS [Concomitant]
     Active Substance: INSULIN GLARGINE
     Dosage: 100 UNITS/ML SUBCUTANEOUS SOLUTION 65 UNIT(S) SUBCUTANEOUS ONCE A DAY (AT BEDTIME)
  14. METFORMIN [Concomitant]
     Active Substance: METFORMIN HYDROCHLORIDE
     Dosage: 500 MG ORAL TABLET, EXTENDED RELEASE 2 TAB(S) ORALLY ONCE A DAY
     Route: 048
  15. METOPROLOL TARTRATE [Concomitant]
     Active Substance: METOPROLOL TARTRATE
     Dosage: 20 MG-12.5 MG ORAL TABLET 1 TAB(S) ORALLY ONCE A DAY
     Route: 048
  16. HYDROCHLOROTHIAZIDE\OLMESARTAN MEDOXOMIL [Concomitant]
     Active Substance: HYDROCHLOROTHIAZIDE\OLMESARTAN MEDOXOMIL
     Indication: Rash
     Dosage: 0.1% TOPICRASH AL CREAM APPLY TOPICALLY TO AFFECTED AREA 2 TIMES A DAY
  17. TRIAMCINOLONE [Concomitant]
     Active Substance: TRIAMCINOLONE
     Indication: Rash
     Dosage: 0.1% TOPICAL CREAM APPLY TOPICALLY TO AFFECTED AREA 2 TIMES A DAY
  18. NOVOLOG [Concomitant]
     Active Substance: INSULIN ASPART
     Dosage: 100 UNITS/ML INJECTABLE SOLUTION: 20 UNIT(S) INJECTABLE 3 TIMES A DAY (BEFORE MEALS)
  19. HYDROCHLOROTHIAZIDE\LOSARTAN [Concomitant]
     Active Substance: HYDROCHLOROTHIAZIDE\LOSARTAN
     Dosage: 50MG-12.5MG ORAL  TAB: 1 TAB(S) ORALLY QD
     Route: 048
  20. CANDESARTAN CILEXETIL\HYDROCHLOROTHIAZIDE [Concomitant]
     Active Substance: CANDESARTAN CILEXETIL\HYDROCHLOROTHIAZIDE
     Dosage: 16 MG-12.5 MG ORAL  TAB: 1 TAB(S) ORALLY QD
     Route: 048

REACTIONS (2)
  - Acute kidney injury [Recovering/Resolving]
  - Blood creatine phosphokinase increased [Recovered/Resolved]

NARRATIVE: CASE EVENT DATE: 20190131
